FAERS Safety Report 13846968 (Version 1)
Quarter: 2017Q3

REPORT INFORMATION
  Report Type: Spontaneous
  Country: US (occurrence: US)
  Receive Date: 20170808
  Receipt Date: 20170808
  Transmission Date: 20171127
  Serious: No
  Sender: FDA-Public Use
  Company Number: US-SA-2017SA134332

PATIENT
  Sex: Female

DRUGS (2)
  1. XYZAL ALLERGY 24HR [Suspect]
     Active Substance: LEVOCETIRIZINE DIHYDROCHLORIDE
     Route: 065
  2. XYZAL ALLERGY 24HR [Suspect]
     Active Substance: LEVOCETIRIZINE DIHYDROCHLORIDE
     Route: 065

REACTIONS (9)
  - Erythema [Unknown]
  - Drug hypersensitivity [Unknown]
  - Eyelids pruritus [Unknown]
  - Lip swelling [Unknown]
  - Lacrimation increased [Unknown]
  - Eye swelling [Unknown]
  - Vision blurred [Unknown]
  - Blepharitis [Unknown]
  - Hyperaesthesia [Unknown]
